FAERS Safety Report 6462162-4 (Version None)
Quarter: 2009Q4

REPORT INFORMATION
  Report Type: 
  Country: None (occurrence: None)
  Receive Date: 20091130
  Receipt Date: 20091030
  Transmission Date: 20100525
  Serious: No
  Sender: FDA-Public Use
  Company Number: US-BAYER-200840514NA

PATIENT
  Age: 58 Year
  Sex: Male
  Weight: 145 kg

DRUGS (1)
  1. ULTRAVIST (PHARMACY BULK) [Suspect]
     Indication: CHEST X-RAY ABNORMAL
     Dosage: TOTAL DAILY DOSE: 100  ML  UNIT DOSE: 100 ML
     Route: 042
     Dates: start: 20081204, end: 20081204

REACTIONS (2)
  - ANGIOEDEMA [None]
  - PRURITUS [None]
